FAERS Safety Report 4381447-9 (Version None)
Quarter: 2004Q2

REPORT INFORMATION
  Report Type: 
  Country: None (occurrence: None)
  Receive Date: 20040616
  Receipt Date: 20040601
  Transmission Date: 20050107
  Serious: Yes (Hospitalization)
  Sender: FDA-Public Use
  Company Number: 2004-0006921

PATIENT
  Age: 35 Year
  Sex: Female

DRUGS (12)
  1. VISTIDE [Suspect]
     Indication: CYTOMEGALOVIRUS CHORIORETINITIS
     Dosage: 300 MG, 1 IN 2 WK, INTRAVENOUS
     Route: 042
     Dates: start: 20030619, end: 20031101
  2. VIREAD [Suspect]
     Indication: HIV INFECTION
     Dates: start: 20020601, end: 20031211
  3. PROBENECID [Concomitant]
  4. CRIXIVAN [Concomitant]
  5. ERYTHROPOIETIN (ERYTHROPOIETIN) [Concomitant]
  6. BACTRIM [Concomitant]
  7. ZITHROMAX [Concomitant]
  8. REGLAN [Concomitant]
  9. EPIVIR (EPIVIR) [Concomitant]
  10. ATAZANAVIR (ATAZANAVIR) [Concomitant]
  11. NORVIR [Concomitant]
  12. COMBIVIR [Concomitant]

REACTIONS (23)
  - AZOTAEMIA [None]
  - CANDIDIASIS [None]
  - CEREBELLAR SYNDROME [None]
  - CONVULSION [None]
  - COORDINATION ABNORMAL [None]
  - DRUG SCREEN POSITIVE [None]
  - DYSKINESIA [None]
  - GLOMERULONEPHRITIS FOCAL [None]
  - GLYCOSURIA [None]
  - HAEMODIALYSIS [None]
  - HALLUCINATION [None]
  - HALLUCINATION, AUDITORY [None]
  - MYOCLONUS [None]
  - NEPHROPATHY TOXIC [None]
  - ORAL PAIN [None]
  - RENAL FAILURE ACUTE [None]
  - RENAL INTERSTITIAL FIBROSIS [None]
  - RENAL TUBULAR NECROSIS [None]
  - SCOTOMA [None]
  - SWELLING FACE [None]
  - SWOLLEN TONGUE [None]
  - TREATMENT NONCOMPLIANCE [None]
  - VOMITING [None]
